FAERS Safety Report 23598453 (Version 5)
Quarter: 2024Q2

REPORT INFORMATION
  Report Type: Report from Study
  Country: US (occurrence: US)
  Receive Date: 20240306
  Receipt Date: 20240618
  Transmission Date: 20240716
  Serious: Yes (Other)
  Sender: FDA-Public Use
  Company Number: US-ACADIA PHARMACEUTICALS INC.-ACA-2024-PIM-000405

PATIENT
  Age: 80 Year
  Sex: Male

DRUGS (18)
  1. NUPLAZID [Suspect]
     Active Substance: PIMAVANSERIN TARTRATE
     Indication: Parkinson^s disease
     Dosage: 34 MILLIGRAM, QD
     Route: 048
     Dates: start: 202304
  2. NUPLAZID [Suspect]
     Active Substance: PIMAVANSERIN TARTRATE
     Dosage: 34 MILLIGRAM, QD
     Route: 048
  3. NUPLAZID [Suspect]
     Active Substance: PIMAVANSERIN TARTRATE
     Dosage: 34 MILLIGRAM, QD
     Route: 048
  4. ELIQUIS [Concomitant]
     Active Substance: APIXABAN
  5. HYDROCHLOROTHIAZIDE [Concomitant]
     Active Substance: HYDROCHLOROTHIAZIDE
  6. MIDODRINE [Concomitant]
     Active Substance: MIDODRINE
  7. CITALOPRAM [Concomitant]
     Active Substance: CITALOPRAM\CITALOPRAM HYDROBROMIDE
  8. TYLENOL [Concomitant]
     Active Substance: ACETAMINOPHEN
  9. BACITRACIN [Concomitant]
     Active Substance: BACITRACIN
  10. ONDANSETRON [Concomitant]
     Active Substance: ONDANSETRON
  11. TRAZODONE [Concomitant]
     Active Substance: TRAZODONE HYDROCHLORIDE
  12. MIRALAX [Concomitant]
     Active Substance: POLYETHYLENE GLYCOL 3350
  13. SIMVASTATIN [Concomitant]
     Active Substance: SIMVASTATIN
  14. TIMOLOL [Concomitant]
     Active Substance: TIMOLOL
  15. RYTARY [Concomitant]
     Active Substance: CARBIDOPA\LEVODOPA
  16. MELATONIN [Concomitant]
     Active Substance: MELATONIN
  17. MECLIZINE [Concomitant]
     Active Substance: MECLIZINE HYDROCHLORIDE
  18. TAMSULOSIN [Concomitant]
     Active Substance: TAMSULOSIN

REACTIONS (19)
  - Pneumonia [Unknown]
  - Choking [Unknown]
  - Suicidal behaviour [Unknown]
  - Dysphagia [Unknown]
  - Wrong technique in product usage process [Unknown]
  - Dysphagia [Unknown]
  - Wrong technique in product usage process [Unknown]
  - Product dose omission issue [Unknown]
  - Parkinson^s disease [Unknown]
  - Vomiting [Unknown]
  - Tooth fracture [Unknown]
  - Product dose omission issue [Unknown]
  - General physical health deterioration [Unknown]
  - Head injury [Unknown]
  - Product use complaint [Unknown]
  - Hypersomnia [Unknown]
  - Hospice care [Unknown]
  - Dyspnoea [Unknown]
  - Fall [Unknown]

NARRATIVE: CASE EVENT DATE: 20230101
